FAERS Safety Report 13936297 (Version 1)
Quarter: 2017Q3

REPORT INFORMATION
  Report Type: Other
  Country: ES (occurrence: ES)
  Receive Date: 20170905
  Receipt Date: 20170905
  Transmission Date: 20171127
  Serious: Yes (Hospitalization)
  Sender: FDA-Public Use
  Company Number: ES-VELOXIS PHARMACEUTICALS-2025549

PATIENT
  Age: 42 Year
  Sex: Male

DRUGS (4)
  1. DOXYCYCLINE. [Suspect]
     Active Substance: DOXYCYCLINE
  2. ENVARSUS XR [Suspect]
     Active Substance: TACROLIMUS
     Indication: IMMUNOSUPPRESSION
  3. PREDNISOLONE. [Suspect]
     Active Substance: PREDNISOLONE
  4. QUINIMAX [Suspect]
     Active Substance: CINCHONIDINE\CINCHONINE\QUINIDINE\QUININE

REACTIONS (3)
  - Drug level fluctuating [Unknown]
  - Malaria [Unknown]
  - Drug interaction [Unknown]
